FAERS Safety Report 8216064-3 (Version None)
Quarter: 2012Q1

REPORT INFORMATION
  Report Type: 
  Country: None (occurrence: None)
  Receive Date: 20120316
  Receipt Date: 20120309
  Transmission Date: 20120608
  Serious: Yes (Death, Other)
  Sender: FDA-Public Use
  Company Number: US-ALEXION-A201200444

PATIENT
  Sex: Female

DRUGS (1)
  1. SOLIRIS [Suspect]
     Indication: HAEMOLYTIC URAEMIC SYNDROME
     Route: 042

REACTIONS (3)
  - NEUROLOGICAL DECOMPENSATION [None]
  - DEATH [None]
  - CARDIAC FAILURE [None]
